FAERS Safety Report 19948933 (Version 1)
Quarter: 2021Q4

REPORT INFORMATION
  Report Type: Spontaneous
  Country: GB (occurrence: GB)
  Receive Date: 20211013
  Receipt Date: 20211013
  Transmission Date: 20220303
  Serious: Yes (Other)
  Sender: FDA-Public Use
  Company Number: None

PATIENT
  Age: 56 Year
  Sex: Female
  Weight: 86 kg

DRUGS (4)
  1. LEVOTHYROXINE SODIUM ANHYDROUS [Suspect]
     Active Substance: LEVOTHYROXINE SODIUM ANHYDROUS
     Indication: Basedow^s disease
     Dosage: 100MCG
     Route: 048
     Dates: start: 20210917
  2. ETANERCEPT [Concomitant]
     Active Substance: ETANERCEPT
  3. PROPRANOLOL [Concomitant]
     Active Substance: PROPRANOLOL HYDROCHLORIDE
  4. SULFASALAZINE [Concomitant]
     Active Substance: SULFASALAZINE

REACTIONS (2)
  - Pruritus [Not Recovered/Not Resolved]
  - Urticaria [Unknown]

NARRATIVE: CASE EVENT DATE: 20210919
